FAERS Safety Report 24796562 (Version 1)
Quarter: 2025Q1

REPORT INFORMATION
  Report Type: Spontaneous
  Country: IT (occurrence: IT)
  Receive Date: 20250101
  Receipt Date: 20250101
  Transmission Date: 20250409
  Serious: Yes (Death, Other)
  Sender: AMGEN
  Company Number: IT-AMGEN-ITASP2024255146

PATIENT

DRUGS (1)
  1. BLINATUMOMAB [Suspect]
     Active Substance: BLINATUMOMAB
     Indication: Acute lymphocytic leukaemia
     Route: 065

REACTIONS (7)
  - Acute lymphocytic leukaemia recurrent [Fatal]
  - Disease complication [Fatal]
  - Leukaemic infiltration extramedullary [Unknown]
  - Pneumonia fungal [Unknown]
  - Therapy non-responder [Unknown]
  - Pancreatic enzymes increased [Unknown]
  - Hypertransaminasaemia [Unknown]
